FAERS Safety Report 22396101 (Version 1)
Quarter: 2023Q2

REPORT INFORMATION
  Report Type: Spontaneous
  Country: US (occurrence: US)
  Receive Date: 20230601
  Receipt Date: 20230601
  Transmission Date: 20230721
  Serious: No
  Sender: FDA-Public Use
  Company Number: US-APIL-2314008US

PATIENT
  Sex: Female

DRUGS (1)
  1. QULIPTA [Suspect]
     Active Substance: ATOGEPANT
     Indication: Product used for unknown indication
     Dosage: 60 MG
     Dates: start: 20221230, end: 202304

REACTIONS (4)
  - Photophobia [Unknown]
  - Migraine [Not Recovered/Not Resolved]
  - Therapy interrupted [Unknown]
  - Headache [Unknown]

NARRATIVE: CASE EVENT DATE: 20230101
